FAERS Safety Report 7095793-1 (Version None)
Quarter: 2010Q4

REPORT INFORMATION
  Report Type: 
  Country: None (occurrence: None)
  Receive Date: 20101111
  Receipt Date: 20101103
  Transmission Date: 20110411
  Serious: Yes (Other)
  Sender: FDA-Public Use
  Company Number: CA-BAXTER-2010BH027535

PATIENT

DRUGS (2)
  1. TISSUCOL/TISSEEL KIT STIM3 [Suspect]
     Indication: PRODUCT USED FOR UNKNOWN INDICATION
     Route: 065
     Dates: start: 19820101, end: 19820101
  2. TISSUCOL/TISSEEL KIT STIM3 [Suspect]
     Route: 065
     Dates: start: 20090101, end: 20090101

REACTIONS (1)
  - HEPATITIS C VIRUS TEST POSITIVE [None]
